FAERS Safety Report 7733083-1 (Version None)
Quarter: 2011Q3

REPORT INFORMATION
  Report Type: 
  Country: None (occurrence: None)
  Receive Date: 20110907
  Receipt Date: 20110830
  Transmission Date: 20111222
  Serious: Yes (Hospitalization)
  Sender: FDA-Public Use
  Company Number: FR-MERCK-1108FRA00108

PATIENT
  Age: 87 Year
  Sex: Male

DRUGS (6)
  1. FLUINDIONE [Concomitant]
     Route: 048
  2. PYRIDOXINE HYDROCHLORIDE [Concomitant]
     Route: 048
  3. HYZAAR [Suspect]
     Indication: HYPERTENSION
     Route: 048
     Dates: start: 20110704
  4. THIAMINE HYDROCHLORIDE [Concomitant]
     Route: 048
  5. RIVASTIGMINE [Concomitant]
     Indication: DEMENTIA ALZHEIMER'S TYPE
     Route: 065
     Dates: start: 20090122
  6. VALPROMIDE [Concomitant]
     Route: 048

REACTIONS (5)
  - HYPERHIDROSIS [None]
  - LOSS OF CONSCIOUSNESS [None]
  - BLOOD PRESSURE SYSTOLIC DECREASED [None]
  - MALAISE [None]
  - HEART RATE DECREASED [None]
